FAERS Safety Report 14476721 (Version 1)
Quarter: 2018Q1

REPORT INFORMATION
  Report Type: Spontaneous
  Country: US (occurrence: US)
  Receive Date: 20180201
  Receipt Date: 20180201
  Transmission Date: 20180509
  Serious: No
  Sender: FDA-Public Use
  Company Number: US-009507513-1801USA009543

PATIENT
  Age: 33 Year
  Sex: Male

DRUGS (3)
  1. PROVENTIL [Concomitant]
     Active Substance: ALBUTEROL
  2. OMEPRAZOLE. [Concomitant]
     Active Substance: OMEPRAZOLE
  3. ZEPATIER [Suspect]
     Active Substance: ELBASVIR\GRAZOPREVIR
     Indication: HEPATITIS C
     Dosage: DAILY DOSE: 50-100MG; TAKE 1 TABLET BY MOUNTH EVERY DAY
     Route: 048
     Dates: start: 201711

REACTIONS (1)
  - Nausea [Recovered/Resolved]

NARRATIVE: CASE EVENT DATE: 201711
